FAERS Safety Report 23096108 (Version 1)
Quarter: 2023Q4

REPORT INFORMATION
  Report Type: Spontaneous
  Country: US (occurrence: None)
  Receive Date: 20231019
  Receipt Date: 20231019
  Transmission Date: 20240110
  Serious: Yes (Hospitalization)
  Sender: FDA-Public Use
  Company Number: None

PATIENT
  Age: 95 Year
  Sex: Male

DRUGS (2)
  1. CARVEDILOL [Suspect]
     Active Substance: CARVEDILOL
     Dates: start: 20200423, end: 20230312
  2. CHLORTHALIDONE [Suspect]
     Active Substance: CHLORTHALIDONE
     Dates: start: 20210106, end: 20230312

REACTIONS (3)
  - Eosinophilic pneumonia [None]
  - Bacteraemia [None]
  - Pneumonia viral [None]

NARRATIVE: CASE EVENT DATE: 20230312
